FAERS Safety Report 9558307 (Version 2)
Quarter: 2014Q1

REPORT INFORMATION
  Report Type: Report from Study
  Country: BR (occurrence: BR)
  Receive Date: 20130926
  Receipt Date: 20140227
  Transmission Date: 20141002
  Serious: Yes (Hospitalization)
  Sender: FDA-Public Use
  Company Number: BR-US-EMD SERONO, INC.-7239063

PATIENT
  Age: 39 Year
  Sex: Female

DRUGS (2)
  1. REBIF [Suspect]
     Indication: MULTIPLE SCLEROSIS
     Route: 058
     Dates: start: 20120102
  2. PAROXETINE [Concomitant]
     Indication: DEPRESSION

REACTIONS (16)
  - Skull fracture [Recovered/Resolved]
  - Fall [Unknown]
  - Head injury [Recovered/Resolved]
  - Spinal pain [Recovered/Resolved]
  - Headache [Recovered/Resolved]
  - Influenza [Not Recovered/Not Resolved]
  - Balance disorder [Unknown]
  - Anosmia [Unknown]
  - Syncope [Recovered/Resolved]
  - Vertigo [Unknown]
  - Nervousness [Unknown]
  - Laceration [Recovered/Resolved]
  - Insomnia [Unknown]
  - Pollakiuria [Unknown]
  - Pyrexia [Unknown]
  - Fatigue [Unknown]
